FAERS Safety Report 8118160-8 (Version None)
Quarter: 2012Q1

REPORT INFORMATION
  Report Type: 
  Country: None (occurrence: None)
  Receive Date: 20120207
  Receipt Date: 20120203
  Transmission Date: 20120608
  Serious: Yes (Hospitalization, Other)
  Sender: FDA-Public Use
  Company Number: IT-BRISTOL-MYERS SQUIBB COMPANY-16366700

PATIENT
  Age: 64 Year
  Sex: Female

DRUGS (13)
  1. COUMADIN [Suspect]
     Indication: ATRIAL FIBRILLATION
     Dosage: 1DF:1UNIT INTERRUPTED ON 01DEC2011
     Dates: start: 20090101
  2. PREDNISONE TAB [Concomitant]
     Indication: INTERSTITIAL LUNG DISEASE
     Dosage: TABS
  3. LEVOTHYROXINE SODIUM [Concomitant]
     Indication: HYPOPITUITARISM
  4. LASIX [Concomitant]
     Indication: OEDEMA
     Route: 048
  5. OMEPRAZOLE [Concomitant]
     Indication: PROPHYLAXIS AGAINST GASTROINTESTINAL ULCER
     Route: 048
  6. FERROUS SULFATE TAB [Concomitant]
     Indication: ANAEMIA
     Dosage: FERRO - GRAD 105 MG TABS
  7. LANOXIN [Concomitant]
     Indication: ATRIAL FIBRILLATION
     Route: 048
  8. OXYGEN [Concomitant]
     Indication: INTERSTITIAL LUNG DISEASE
  9. CALCIUM [Concomitant]
     Indication: CALCIUM DEFICIENCY
     Dosage: 1DF:1UNIT
     Route: 048
  10. LEUCOVORIN CALCIUM [Concomitant]
     Indication: FOLATE DEFICIENCY
     Dosage: 1DF:1UNIT
     Route: 048
  11. POTASSIUM CHLORIDE [Concomitant]
     Route: 048
  12. BISOPROLOL FUMARATE [Concomitant]
     Indication: CARDIAC FAILURE
     Dosage: 1DF:2UNITS CONGESCOR 1.25 MG TABS,
     Route: 048
  13. TRAZODONE HCL [Concomitant]
     Indication: DEPRESSION

REACTIONS (2)
  - MELAENA [None]
  - ANAEMIA [None]
